FAERS Safety Report 7466858-7 (Version None)
Quarter: 2011Q2

REPORT INFORMATION
  Report Type: 
  Country: None (occurrence: None)
  Receive Date: 20110505
  Receipt Date: 20110505
  Transmission Date: 20111010
  Serious: Yes (Other)
  Sender: FDA-Public Use
  Company Number: None

PATIENT
  Sex: Female
  Weight: 94.3482 kg

DRUGS (5)
  1. CRESTOR [Concomitant]
  2. OXYCONTIN [Suspect]
     Dosage: 20MG 2X/D PO FROM 5/2007 AND ONCE EARLIER
     Route: 048
  3. CYMBALTA [Concomitant]
  4. LISINOPRIL [Concomitant]
  5. ROXICODONE [Concomitant]

REACTIONS (1)
  - PAIN [None]
